FAERS Safety Report 20113108 (Version 1)
Quarter: 2021Q4

REPORT INFORMATION
  Report Type: Spontaneous
  Country: US (occurrence: None)
  Receive Date: 20211124
  Receipt Date: 20211124
  Transmission Date: 20220304
  Serious: No
  Sender: FDA-Public Use
  Company Number: None

PATIENT
  Sex: Male
  Weight: 73.94 kg

DRUGS (9)
  1. CAPECITABINE [Suspect]
     Active Substance: CAPECITABINE
     Indication: Gallbladder cancer
     Dosage: OTHER FREQUENCY : BID 14 OF 21 DAYS;?
     Route: 048
  2. ATORVASTATIN [Concomitant]
     Active Substance: ATORVASTATIN
  3. CALCIUM [Concomitant]
     Active Substance: CALCIUM
  4. VITAMINS [Concomitant]
     Active Substance: VITAMINS
  5. LORATADINE [Concomitant]
     Active Substance: LORATADINE
  6. OMEPRAZOLE [Concomitant]
     Active Substance: OMEPRAZOLE
  7. XARELTO [Concomitant]
     Active Substance: RIVAROXABAN
  8. ENALAPRIL [Concomitant]
     Active Substance: ENALAPRIL
  9. GAS RELIEF [Concomitant]
     Active Substance: DIMETHICONE

REACTIONS (1)
  - Disease progression [None]
